FAERS Safety Report 19081421 (Version 1)
Quarter: 2021Q2

REPORT INFORMATION
  Report Type: Spontaneous
  Country: US (occurrence: US)
  Receive Date: 20210401
  Receipt Date: 20210401
  Transmission Date: 20210717
  Serious: Yes (Other)
  Sender: FDA-Public Use
  Company Number: US-SUN PHARMACEUTICAL INDUSTRIES LTD-2021R1-288577

PATIENT
  Age: 5 Year
  Sex: Male

DRUGS (6)
  1. VINCRISTINE [Suspect]
     Active Substance: VINCRISTINE
     Indication: CHEMOTHERAPY
     Dosage: UNK
     Route: 065
  2. FUSIDIC ACID [Suspect]
     Active Substance: FUSIDIC ACID
     Indication: LEISHMANIASIS
     Dosage: UNK
     Route: 061
  3. COTRIMOXAZOLE [Suspect]
     Active Substance: SULFAMETHOXAZOLE\TRIMETHOPRIM
     Indication: LEISHMANIASIS
     Dosage: UNK
     Route: 065
  4. METHOTREXATE. [Suspect]
     Active Substance: METHOTREXATE
     Indication: CHEMOTHERAPY
     Dosage: UNK
     Route: 065
  5. 6?MERCAPTOPURINE [Suspect]
     Active Substance: MERCAPTOPURINE
     Indication: CHEMOTHERAPY
     Dosage: UNK
     Route: 065
  6. DEXAMETHASONE. [Suspect]
     Active Substance: DEXAMETHASONE
     Indication: CHEMOTHERAPY
     Dosage: UNK
     Route: 065

REACTIONS (2)
  - Bacterial infection [Recovering/Resolving]
  - Drug ineffective [Unknown]
